FAERS Safety Report 22286068 (Version 3)
Quarter: 2023Q4

REPORT INFORMATION
  Report Type: Report from Study
  Country: US (occurrence: US)
  Receive Date: 20230505
  Receipt Date: 20231010
  Transmission Date: 20240109
  Serious: Yes (Hospitalization, Other)
  Sender: FDA-Public Use
  Company Number: US-ABBVIE-4751863

PATIENT
  Sex: Female

DRUGS (3)
  1. HUMIRA [Suspect]
     Active Substance: ADALIMUMAB
     Indication: Rheumatoid arthritis
     Route: 058
     Dates: start: 20220908
  2. HUMIRA [Suspect]
     Active Substance: ADALIMUMAB
     Route: 058
     Dates: start: 20220826, end: 20220826
  3. HUMIRA [Suspect]
     Active Substance: ADALIMUMAB
     Route: 058

REACTIONS (16)
  - Pulmonary oedema [Unknown]
  - Depression [Unknown]
  - Breath sounds abnormal [Unknown]
  - Arthralgia [Unknown]
  - Feeling abnormal [Unknown]
  - Injection site pruritus [Unknown]
  - Illness [Unknown]
  - Headache [Unknown]
  - Dyspnoea [Unknown]
  - Injection site swelling [Recovered/Resolved]
  - Decreased appetite [Unknown]
  - Memory impairment [Unknown]
  - Unevaluable event [Unknown]
  - Pulmonary fibrosis [Unknown]
  - Mobility decreased [Unknown]
  - Abdominal pain lower [Unknown]

NARRATIVE: CASE EVENT DATE: 20030101
